FAERS Safety Report 24708837 (Version 1)
Quarter: 2024Q4

REPORT INFORMATION
  Report Type: Report from Study
  Country: CO (occurrence: CO)
  Receive Date: 20241207
  Receipt Date: 20241207
  Transmission Date: 20250115
  Serious: Yes (Death)
  Sender: ABBVIE
  Company Number: CO-ABBVIE-6036283

PATIENT
  Age: 73 Year
  Sex: Male

DRUGS (1)
  1. VENCLEXTA [Suspect]
     Active Substance: VENETOCLAX
     Indication: Acute myeloid leukaemia
     Dosage: FORM STRENGTH:10 MILLIGRAM
     Route: 048
     Dates: start: 20241124, end: 20241125

REACTIONS (1)
  - Death [Fatal]

NARRATIVE: CASE EVENT DATE: 20241125
